FAERS Safety Report 17054093 (Version 2)
Quarter: 2019Q4

REPORT INFORMATION
  Report Type: Spontaneous
  Country: CN (occurrence: CN)
  Receive Date: 20191120
  Receipt Date: 20191205
  Transmission Date: 20200122
  Serious: Yes (Hospitalization, Other)
  Sender: FDA-Public Use
  Company Number: CN-PFIZER INC-2019500585

PATIENT
  Age: 65 Year
  Sex: Female
  Weight: 75 kg

DRUGS (17)
  1. RAMIPRIL. [Suspect]
     Active Substance: RAMIPRIL
     Indication: BLOOD PRESSURE DECREASED
     Dosage: 5 MG, 1X/DAY
  2. ESCITALOPRAM OXALATE. [Concomitant]
     Active Substance: ESCITALOPRAM OXALATE
     Indication: ANTIDEPRESSANT THERAPY
     Dosage: 5 MG, 1X/DAY
     Route: 048
     Dates: start: 20181224
  3. WARFARIN SODIUM. [Concomitant]
     Active Substance: WARFARIN SODIUM
     Dosage: 3 MG, 1X/DAY
     Route: 048
     Dates: start: 20181215, end: 20181223
  4. SODIUM CHLORIDE. [Concomitant]
     Active Substance: SODIUM CHLORIDE
     Indication: GASTRIC PH DECREASED
     Dosage: 100 ML, UNK
     Route: 041
  5. LEVOTHYROXINE SODIUM. [Concomitant]
     Active Substance: LEVOTHYROXINE SODIUM
     Indication: HYPOTHYROIDISM
     Dosage: 50 MG, 1X/DAY
     Route: 048
  6. WARFARIN SODIUM. [Concomitant]
     Active Substance: WARFARIN SODIUM
     Dosage: UNK
     Route: 048
     Dates: start: 20181224
  7. LORAZEPAM. [Concomitant]
     Active Substance: LORAZEPAM
     Indication: ANTIDEPRESSANT THERAPY
     Dosage: 1 MG, 1X/DAY (EVERY NIGHT)
     Route: 048
     Dates: start: 20181224
  8. SPIRONOLACTONE. [Concomitant]
     Active Substance: SPIRONOLACTONE
     Indication: POLYURIA
     Dosage: 20 MG, 2X/DAY
     Route: 048
  9. IMDUR [Suspect]
     Active Substance: ISOSORBIDE MONONITRATE
     Indication: MYOCARDIAL ISCHAEMIA
     Dosage: 60 MG, 1X/DAY
     Route: 048
     Dates: start: 20181227
  10. WARFARIN SODIUM. [Concomitant]
     Active Substance: WARFARIN SODIUM
     Indication: COAGULOPATHY
     Dosage: 1.5 MG, 1X/DAY (HS)
     Route: 048
     Dates: start: 20181211, end: 20181214
  11. METOPROLOL. [Concomitant]
     Active Substance: METOPROLOL
     Indication: HEART RATE ABNORMAL
     Dosage: 25 MG, 2X/DAY
  12. IRBESARTAN. [Concomitant]
     Active Substance: IRBESARTAN
     Indication: BLOOD PRESSURE DECREASED
     Dosage: 150 MG, 1X/DAY
     Route: 048
  13. PANTOPRAZOLE [Concomitant]
     Active Substance: PANTOPRAZOLE
     Indication: GASTRIC PH DECREASED
     Dosage: 40 MG, 1X/DAY
  14. SODIUM CHLORIDE. [Concomitant]
     Active Substance: SODIUM CHLORIDE
     Indication: BLOOD ELECTROLYTES ABNORMAL
     Dosage: 30 ML, UNK
     Route: 041
  15. LANSOPRAZOLE. [Concomitant]
     Active Substance: LANSOPRAZOLE
     Indication: GASTRIC PH DECREASED
     Dosage: 30 MG, 1X/DAY
  16. DIGOXIN. [Concomitant]
     Active Substance: DIGOXIN
     Indication: CARDIAC DISORDER
     Dosage: 0.125 MG, 1X/DAY
     Route: 048
     Dates: start: 20181224
  17. HYDROCHLOROTHIAZIDE. [Concomitant]
     Active Substance: HYDROCHLOROTHIAZIDE
     Indication: POLYURIA
     Dosage: 25 MG, 1X/DAY
     Route: 048

REACTIONS (15)
  - Blood sodium decreased [Unknown]
  - Blood chloride decreased [Unknown]
  - Chronic gastritis [Unknown]
  - Depression [Unknown]
  - Tachycardia [Recovered/Resolved]
  - Cardiac dysfunction [Unknown]
  - Asthenia [Recovered/Resolved]
  - Hypothyroidism [Unknown]
  - Chest discomfort [Unknown]
  - Hypertension [Unknown]
  - Angina unstable [Unknown]
  - Malaise [Recovered/Resolved]
  - Cardiac failure [Unknown]
  - Myocardial ischaemia [Unknown]
  - Cough [Unknown]

NARRATIVE: CASE EVENT DATE: 20181224
